FAERS Safety Report 8616032 (Version 2)
Quarter: 2012Q4

REPORT INFORMATION
  Report Type: 
  Country: US (occurrence: US)
  Receive Date: 20120614
  Receipt Date: 20120927
  Transmission Date: 20130627
  Serious: No
  Sender: FDA-Public Use
  Company Number: US-AMGEN-USASP2012032492

PATIENT
  Age: 73 Year
  Sex: Female
  Weight: 73.47 kg

DRUGS (12)
  1. PROLIA [Suspect]
     Indication: OSTEOPOROSIS POSTMENOPAUSAL
     Dosage: 60 mg, q6mo
     Route: 058
     Dates: start: 20111121
  2. ANTIHYPERTENSIVES [Concomitant]
     Dosage: UNK
  3. LOVASTATIN [Concomitant]
     Dosage: UNK
  4. METFORMIN [Concomitant]
     Dosage: UNK UNK, bid
  5. CALTRATE + D                       /00944201/ [Concomitant]
     Indication: PELVIC FRACTURE
     Dosage: UNK UNK, qd
     Route: 048
  6. CENTRUM                            /02267801/ [Concomitant]
     Indication: OSTEOPOROSIS POSTMENOPAUSAL
  7. ROCALTROL [Concomitant]
     Indication: MALABSORPTION
     Dosage: UNK UNK, 3 times/wk
  8. NAPROXEN [Concomitant]
     Dosage: UNK UNK, bid
  9. ATENOLOL [Concomitant]
     Dosage: 50 mg, UNK
  10. PANTOPRAZOLE [Concomitant]
  11. REGLAN                             /00041901/ [Concomitant]
  12. PRAVASTATIN [Concomitant]

REACTIONS (4)
  - Weight decreased [Recovered/Resolved]
  - Nausea [Recovered/Resolved]
  - Vomiting [Recovered/Resolved]
  - Gastritis [Recovered/Resolved]
